FAERS Safety Report 9648213 (Version 1)
Quarter: 2013Q4

REPORT INFORMATION
  Report Type: Report from Study
  Country: US (occurrence: US)
  Receive Date: 20131028
  Receipt Date: 20131028
  Transmission Date: 20140711
  Serious: Yes (Other)
  Sender: FDA-Public Use
  Company Number: PHEH2013US022220

PATIENT
  Sex: Female

DRUGS (3)
  1. GILENYA [Suspect]
     Indication: MULTIPLE SCLEROSIS
     Dosage: 0.5 MG, QD
     Route: 048
  2. FISH OIL [Concomitant]
  3. MULTIVIT//VITAMINS NOS [Concomitant]

REACTIONS (3)
  - Central nervous system lesion [Unknown]
  - Feeling abnormal [Unknown]
  - Panic reaction [Unknown]
